FAERS Safety Report 9640188 (Version 1)
Quarter: 2013Q4

REPORT INFORMATION
  Report Type: Spontaneous
  Country: US (occurrence: US)
  Receive Date: 20131023
  Receipt Date: 20131023
  Transmission Date: 20140711
  Serious: No
  Sender: FDA-Public Use
  Company Number: US-PFIZER INC-2013299480

PATIENT
  Age: 70 Year
  Sex: Male
  Weight: 82 kg

DRUGS (3)
  1. LIPITOR [Suspect]
     Indication: BLOOD CHOLESTEROL INCREASED
     Dosage: 40 MG, 1X/DAY
     Route: 048
     Dates: end: 2013
  2. NEXIUM [Concomitant]
     Dosage: UNK
  3. ALTACE [Concomitant]
     Dosage: UNK

REACTIONS (3)
  - Muscle spasms [Unknown]
  - Pain [Unknown]
  - Laboratory test abnormal [Unknown]
